APPROVED DRUG PRODUCT: EFUDEX
Active Ingredient: FLUOROURACIL
Strength: 2%
Dosage Form/Route: SOLUTION;TOPICAL
Application: N016831 | Product #001 | TE Code: AT
Applicant: EXTROVIS AG
Approved: Approved Prior to Jan 1, 1982 | RLD: Yes | RS: Yes | Type: RX